FAERS Safety Report 8457452-X (Version None)
Quarter: 2012Q2

REPORT INFORMATION
  Report Type: 
  Country: None (occurrence: None)
  Receive Date: 20120621
  Receipt Date: 20120618
  Transmission Date: 20120825
  Serious: Yes (Hospitalization, Disabling, Other)
  Sender: FDA-Public Use
  Company Number: US-MERCK-1203USA03368

PATIENT
  Age: 64 Year
  Sex: Female

DRUGS (6)
  1. FOSAMAX [Suspect]
     Indication: OSTEOPENIA
     Route: 048
     Dates: start: 20000101, end: 20020201
  2. FOSAMAX [Suspect]
     Route: 048
     Dates: start: 20020201, end: 20060101
  3. FOSAMAX [Suspect]
     Route: 048
     Dates: start: 20090101, end: 20100801
  4. FOSAMAX [Suspect]
     Route: 048
     Dates: start: 20090101, end: 20100801
  5. FOSAMAX [Suspect]
     Indication: OSTEOPOROSIS
     Route: 048
     Dates: start: 20000101, end: 20020201
  6. FOSAMAX [Suspect]
     Route: 048
     Dates: start: 20020201, end: 20060101

REACTIONS (43)
  - POST PROCEDURAL HAEMORRHAGE [None]
  - OSTEOPOROSIS [None]
  - FOOT DEFORMITY [None]
  - ULNA FRACTURE [None]
  - VITAMIN D DEFICIENCY [None]
  - VASODILATATION [None]
  - SCOLIOSIS [None]
  - NAUSEA [None]
  - CARDIAC VALVE DISEASE [None]
  - GOUTY ARTHRITIS [None]
  - RECTAL HAEMORRHAGE [None]
  - ROAD TRAFFIC ACCIDENT [None]
  - DEVICE BREAKAGE [None]
  - BONE DISORDER [None]
  - ATRIOVENTRICULAR BLOCK FIRST DEGREE [None]
  - IMMOBILE [None]
  - RASH [None]
  - DEHYDRATION [None]
  - LOW TURNOVER OSTEOPATHY [None]
  - ARTHRALGIA [None]
  - FEMUR FRACTURE [None]
  - BASAL CELL CARCINOMA [None]
  - RESPIRATORY ARREST [None]
  - HYPERTENSION [None]
  - SYNCOPE [None]
  - PATELLOFEMORAL PAIN SYNDROME [None]
  - STRESS FRACTURE [None]
  - BUNION [None]
  - LACUNAR INFARCTION [None]
  - HYPERLIPIDAEMIA [None]
  - SPINAL OSTEOARTHRITIS [None]
  - LEFT VENTRICULAR HYPERTROPHY [None]
  - EXOSTOSIS [None]
  - CATARACT [None]
  - ANAEMIA POSTOPERATIVE [None]
  - MULTIPLE FRACTURES [None]
  - FOREARM FRACTURE [None]
  - PRESYNCOPE [None]
  - RADIUS FRACTURE [None]
  - OSTEOARTHRITIS [None]
  - FRACTURE NONUNION [None]
  - GOITRE [None]
  - PULMONARY ARTERIAL PRESSURE INCREASED [None]
